FAERS Safety Report 11363647 (Version 1)
Quarter: 2015Q3

REPORT INFORMATION
  Report Type: Other
  Country: None (occurrence: BR)
  Receive Date: 20150811
  Receipt Date: 20150811
  Transmission Date: 20151125
  Serious: Yes (Other)
  Sender: FDA-Public Use
  Company Number: BR-MERCK KGAA-1041008

PATIENT

DRUGS (1)
  1. NOVOTHYROX [Suspect]
     Active Substance: LEVOTHYROXINE SODIUM

REACTIONS (8)
  - Staphylococcal infection [None]
  - Bedridden [None]
  - Tooth disorder [None]
  - Feeling abnormal [None]
  - Weight decreased [None]
  - Pseudomonas infection [None]
  - Sinusitis [None]
  - Enterobacter infection [None]
